FAERS Safety Report 9967677 (Version 1)
Quarter: 2014Q1

REPORT INFORMATION
  Report Type: Spontaneous
  Country: GB (occurrence: GB)
  Receive Date: 20140306
  Receipt Date: 20140306
  Transmission Date: 20141002
  Serious: Yes (Other)
  Sender: FDA-Public Use
  Company Number: GB-MYLANLABS-2014S1004212

PATIENT
  Age: 32 Year
  Sex: Female
  Weight: 74.11 kg

DRUGS (1)
  1. MIRTAZAPINE [Suspect]
     Indication: DEPRESSION
     Route: 048
     Dates: start: 20130205, end: 20140211

REACTIONS (8)
  - Liver function test abnormal [Not Recovered/Not Resolved]
  - Dyspnoea [Unknown]
  - Dizziness [Unknown]
  - Abdominal distension [Unknown]
  - Oedema [Unknown]
  - Abdominal pain upper [Unknown]
  - Abnormal weight gain [Unknown]
  - Eating disorder [Unknown]
